FAERS Safety Report 22641446 (Version 1)
Quarter: 2023Q2

REPORT INFORMATION
  Report Type: Report from Study
  Country: DE (occurrence: DE)
  Receive Date: 20230626
  Receipt Date: 20230626
  Transmission Date: 20230721
  Serious: Yes (Hospitalization)
  Sender: FDA-Public Use
  Company Number: DE-AMGEN-DEUNI2018119454

PATIENT
  Age: 79 Year
  Sex: Male
  Weight: 67 kg

DRUGS (46)
  1. FLUOROURACIL [Suspect]
     Active Substance: FLUOROURACIL
     Indication: Colorectal cancer metastatic
     Dosage: 560 MILLIGRAM
     Route: 042
     Dates: start: 20180110
  2. FLUOROURACIL [Suspect]
     Active Substance: FLUOROURACIL
     Dosage: 3425 MILLIGRAM
     Route: 042
     Dates: start: 20171212
  3. FLUOROURACIL [Suspect]
     Active Substance: FLUOROURACIL
     Dosage: 550 MILLIGRAM
     Route: 042
     Dates: start: 20170220
  4. FLUOROURACIL [Suspect]
     Active Substance: FLUOROURACIL
     Dosage: 4224 MILLIGRAM
     Route: 042
     Dates: start: 20180806
  5. FLUOROURACIL [Suspect]
     Active Substance: FLUOROURACIL
     Dosage: 3350 MILLIGRAM
     Route: 042
     Dates: start: 20170206
  6. FLUOROURACIL [Suspect]
     Active Substance: FLUOROURACIL
     Dosage: 1650 MILLIGRAM
     Route: 042
     Dates: start: 20170206
  7. FLUOROURACIL [Suspect]
     Active Substance: FLUOROURACIL
     Dosage: 3360 MILLIGRAM
     Route: 042
     Dates: start: 20170508
  8. FLUOROURACIL [Suspect]
     Active Substance: FLUOROURACIL
     Dosage: 704 MILLIGRAM
     Route: 042
     Dates: start: 20180806
  9. FLUOROURACIL [Suspect]
     Active Substance: FLUOROURACIL
     Dosage: 560 MILLIGRAM
     Route: 042
     Dates: start: 20170508
  10. FLUOROURACIL [Suspect]
     Active Substance: FLUOROURACIL
     Dosage: 2956 MILLIGRAM
     Route: 042
     Dates: start: 20180723
  11. FLUOROURACIL [Suspect]
     Active Substance: FLUOROURACIL
     Dosage: 575 MILLIGRAM
     Route: 042
     Dates: start: 20171212
  12. FLUOROURACIL [Suspect]
     Active Substance: FLUOROURACIL
     Dosage: 3350 MILLIGRAM
     Route: 042
     Dates: start: 20170220
  13. FLUOROURACIL [Suspect]
     Active Substance: FLUOROURACIL
     Dosage: 492 MILLIGRAM
     Route: 042
     Dates: start: 20180723
  14. FLUOROURACIL [Suspect]
     Active Substance: FLUOROURACIL
     Dosage: 3360 MILLIGRAM
     Route: 042
     Dates: start: 20180110
  15. IRINOTECAN [Suspect]
     Active Substance: IRINOTECAN
     Indication: Colorectal cancer metastatic
     Dosage: 250 MILLIGRAM
     Route: 065
     Dates: start: 20170220
  16. IRINOTECAN [Suspect]
     Active Substance: IRINOTECAN
     Dosage: 221 MILLIGRAM
     Route: 065
     Dates: start: 20180723
  17. IRINOTECAN [Suspect]
     Active Substance: IRINOTECAN
     Dosage: 252 MILLIGRAM
     Route: 065
     Dates: start: 20180110
  18. IRINOTECAN [Suspect]
     Active Substance: IRINOTECAN
     Dosage: 750 MILLIGRAM
     Route: 065
     Dates: start: 20170206
  19. IRINOTECAN [Suspect]
     Active Substance: IRINOTECAN
     Dosage: 252 MILLIGRAM
     Route: 065
     Dates: start: 20170508
  20. IRINOTECAN [Suspect]
     Active Substance: IRINOTECAN
     Dosage: 316 MILLIGRAM
     Route: 065
     Dates: start: 20180806
  21. IRINOTECAN [Suspect]
     Active Substance: IRINOTECAN
     Dosage: 255 MILLIGRAM
     Route: 065
     Dates: start: 20171227
  22. IRINOTECAN [Suspect]
     Active Substance: IRINOTECAN
     Dosage: 260 MILLIGRAM
     Route: 065
     Dates: start: 20171212
  23. PANITUMUMAB [Suspect]
     Active Substance: PANITUMUMAB
     Indication: Colorectal cancer metastatic
     Dosage: 425 MILLIGRAM
     Route: 042
     Dates: start: 20171227
  24. PANITUMUMAB [Suspect]
     Active Substance: PANITUMUMAB
     Dosage: 400 MILLIGRAM
     Route: 042
     Dates: start: 20170206
  25. PANITUMUMAB [Suspect]
     Active Substance: PANITUMUMAB
     Dosage: 414 MILLIGRAM
     Route: 042
     Dates: start: 20180723
  26. PANITUMUMAB [Suspect]
     Active Substance: PANITUMUMAB
     Dosage: 408 MILLIGRAM
     Route: 042
     Dates: start: 20180110
  27. PANITUMUMAB [Suspect]
     Active Substance: PANITUMUMAB
     Dosage: 426 MILLIGRAM
     Route: 042
     Dates: start: 20171212
  28. PANITUMUMAB [Suspect]
     Active Substance: PANITUMUMAB
     Dosage: 408 MILLIGRAM
     Route: 042
     Dates: start: 20170508
  29. LEUCOVORIN [Suspect]
     Active Substance: LEUCOVORIN
     Indication: Colorectal cancer metastatic
     Dosage: 550 MILLIGRAM
     Route: 065
     Dates: start: 20170220
  30. LEUCOVORIN [Suspect]
     Active Substance: LEUCOVORIN
     Dosage: 1650 MILLIGRAM
     Route: 065
     Dates: start: 20170206
  31. LEUCOVORIN [Suspect]
     Active Substance: LEUCOVORIN
     Dosage: 570 MILLIGRAM
     Route: 065
     Dates: start: 20171212
  32. LEUCOVORIN [Suspect]
     Active Substance: LEUCOVORIN
     Dosage: 560 MILLIGRAM
     Route: 065
     Dates: start: 20180110
  33. LEUCOVORIN [Suspect]
     Active Substance: LEUCOVORIN
     Dosage: 560 MILLIGRAM
     Route: 065
     Dates: start: 20170508
  34. LEUCOVORIN [Suspect]
     Active Substance: LEUCOVORIN
     Dosage: 492 MILLIGRAM
     Route: 065
     Dates: start: 20180723
  35. LEUCOVORIN [Suspect]
     Active Substance: LEUCOVORIN
     Dosage: 704 MILLIGRAM
     Route: 065
     Dates: start: 20180806
  36. ONDANSETRON RATIOPHARM [Concomitant]
     Indication: Prophylaxis
     Dosage: 8 MILLIGRAM, DAILY
     Route: 048
     Dates: start: 20180123
  37. METOPROLOL SUCCINATE [Concomitant]
     Active Substance: METOPROLOL SUCCINATE
     Indication: Hypertension
     Dosage: 47 MILLIGRAM, DAILY
     Route: 048
     Dates: start: 2014
  38. SIMVASTATIN [Concomitant]
     Active Substance: SIMVASTATIN
     Indication: Hypercholesterolaemia
     Dosage: 20 MILLIGRAM, DAILY
     Route: 048
     Dates: start: 2014
  39. AMLODIPINE MALEATE [Concomitant]
     Active Substance: AMLODIPINE MALEATE
     Indication: Hypertension
     Dosage: 5 MILLIGRAM, DAILY
     Route: 048
     Dates: start: 2014
  40. GLIMEPIRIDE RATIOPHARM [Concomitant]
     Indication: Diabetes mellitus
     Dosage: 1 MILLIGRAM, DAILY
     Route: 048
     Dates: start: 2014
  41. PANTOZOL [Concomitant]
     Active Substance: PANTOPRAZOLE SODIUM
     Indication: Prophylaxis
     Dosage: 40 MILLIGRAM, DAILY
     Route: 048
     Dates: start: 2014
  42. DOXYCYCLINE [Concomitant]
     Active Substance: DOXYCYCLINE
     Indication: Prophylaxis
     Dosage: 100 MILLIGRAM, DAILY
     Route: 048
     Dates: start: 20171204
  43. ASPIRIN [Concomitant]
     Active Substance: ASPIRIN
     Indication: Prophylaxis
     Dosage: 100 MILLIGRAM, DAILY
     Route: 048
     Dates: start: 2014
  44. METFORMIN HYDROCHLORIDE [Concomitant]
     Active Substance: METFORMIN HYDROCHLORIDE
     Indication: Diabetes mellitus
     Dosage: 1000 MILLIGRAM, DAILY
     Route: 048
     Dates: start: 2014
  45. METROGEL [Concomitant]
     Active Substance: METRONIDAZOLE
     Indication: Prophylaxis
     Dosage: 75 UNK, TID
     Route: 062
     Dates: start: 20171227
  46. RAMIPRIL [Concomitant]
     Active Substance: RAMIPRIL
     Indication: Hypertension
     Dosage: 10 MILLIGRAM, DAILY
     Route: 048
     Dates: start: 2014

REACTIONS (1)
  - Dermatitis acneiform [Recovered/Resolved]

NARRATIVE: CASE EVENT DATE: 20180815
